FAERS Safety Report 5243414-2 (Version None)
Quarter: 2007Q1

REPORT INFORMATION
  Report Type: 
  Country: None (occurrence: None)
  Receive Date: 20070214
  Receipt Date: 20070124
  Transmission Date: 20070707
  Serious: Yes (Hospitalization)
  Sender: FDA-Public Use
  Company Number: WAES 0701KOR00014

PATIENT
  Age: 26 Year
  Sex: Female

DRUGS (3)
  1. COSOPT [Suspect]
     Indication: OPEN ANGLE GLAUCOMA
     Dosage: UNK OPHT
     Route: 047
  2. ALPHAGAN [Suspect]
     Indication: OPEN ANGLE GLAUCOMA
     Dosage: UNK OPHT
     Route: 047
  3. XALATAN [Suspect]
     Indication: OPEN ANGLE GLAUCOMA
     Dosage: UNK OPHT
     Route: 047

REACTIONS (3)
  - CORNEAL OEDEMA [None]
  - DRUG INEFFECTIVE [None]
  - VISION BLURRED [None]
